FAERS Safety Report 13420616 (Version 1)
Quarter: 2017Q2

REPORT INFORMATION
  Report Type: Spontaneous
  Country: US (occurrence: US)
  Receive Date: 20170408
  Receipt Date: 20170408
  Transmission Date: 20170830
  Serious: No
  Sender: FDA-Public Use
  Company Number: US-ELI_LILLY_AND_COMPANY-US201704001655

PATIENT
  Sex: Female

DRUGS (3)
  1. HUMULIN N [Suspect]
     Active Substance: INSULIN HUMAN
     Dosage: 42 U, BID (MORNING, NIGHT)
     Route: 065
  2. HUMULIN N [Suspect]
     Active Substance: INSULIN HUMAN
     Indication: TYPE 2 DIABETES MELLITUS
     Dosage: 42 U, BID
     Route: 065
     Dates: start: 2002
  3. GABAPENTIN. [Suspect]
     Active Substance: GABAPENTIN
     Indication: NEUROPATHY PERIPHERAL
     Dosage: UNK, UNKNOWN
     Route: 065
     Dates: start: 2003

REACTIONS (2)
  - Neuropathy peripheral [Not Recovered/Not Resolved]
  - Cardiac flutter [Unknown]
